FAERS Safety Report 13495865 (Version 3)
Quarter: 2017Q2

REPORT INFORMATION
  Report Type: Spontaneous
  Country: DE (occurrence: DE)
  Receive Date: 20170428
  Receipt Date: 20170511
  Transmission Date: 20170830
  Serious: Yes (Other)
  Sender: FDA-Public Use
  Company Number: DE-BAXTER-2017BAX017960

PATIENT
  Age: 60 Year
  Sex: Female

DRUGS (4)
  1. ENDOXAN [Suspect]
     Active Substance: CYCLOPHOSPHAMIDE
     Indication: METASTASIS
     Dosage: 0-0-2 TABLETS (IN THE EVENING)
     Route: 065
     Dates: start: 2015, end: 20170502
  2. ENDOXAN [Suspect]
     Active Substance: CYCLOPHOSPHAMIDE
     Indication: RECURRENT CANCER
  3. OVASTAT MEDAC [Suspect]
     Active Substance: TREOSULFAN
     Indication: METASTASIS
     Dosage: 2-1-0 CAPSULE (TWO TIMES IN MORNING, ONE TIME IN LUNCH)
     Route: 065
     Dates: start: 201704, end: 20170502
  4. OVASTAT MEDAC [Suspect]
     Active Substance: TREOSULFAN
     Indication: RECURRENT CANCER

REACTIONS (5)
  - Recurrent cancer [Unknown]
  - Nausea [Unknown]
  - Metastases to gastrointestinal tract [Unknown]
  - Drug ineffective [Unknown]
  - Metastases to abdominal cavity [Unknown]

NARRATIVE: CASE EVENT DATE: 201704
